FAERS Safety Report 6934558-5 (Version None)
Quarter: 2010Q3

REPORT INFORMATION
  Report Type: 
  Country: None (occurrence: None)
  Receive Date: 20100820
  Receipt Date: 20100810
  Transmission Date: 20110219
  Serious: Yes (Other)
  Sender: FDA-Public Use
  Company Number: JP-ABBOTT-10P-087-0664123-00

PATIENT
  Sex: Male

DRUGS (8)
  1. NORVIR [Suspect]
     Indication: HIV INFECTION
     Dosage: 100MG DAILY
     Route: 048
     Dates: start: 20071225
  2. ATAZANAVIR [Suspect]
     Indication: HIV INFECTION
     Dosage: 300MG DAILY
     Route: 048
     Dates: start: 20071225
  3. EPZICOM [Suspect]
     Indication: HIV INFECTION
     Route: 048
     Dates: start: 20071225
  4. LOXPPROPHEN SODIUM [Concomitant]
     Indication: HAEMOPHILIC ARTHROPATHY
     Dosage: 100MG DAILY
     Route: 048
     Dates: end: 20090525
  5. FREEZE-DRIED HUMAN BLOOD-COAGULATION FACTOR IX [Concomitant]
     Indication: FACTOR IX DEFICIENCY
     Route: 042
  6. FLURBIPROFEN [Concomitant]
     Indication: HAEMOPHILIC ARTHROPATHY
     Route: 061
     Dates: start: 20090526
  7. LORAZEPAM [Concomitant]
     Indication: DEPRESSION
     Route: 048
     Dates: start: 20080624, end: 20090914
  8. ZOPICLONE [Concomitant]
     Indication: DEPRESSION
     Dosage: DAILY AS NEEDED
     Route: 048
     Dates: start: 20090915

REACTIONS (3)
  - DEAFNESS [None]
  - EAR PAIN [None]
  - TINNITUS [None]
